FAERS Safety Report 24066107 (Version 1)
Quarter: 2024Q3

REPORT INFORMATION
  Report Type: Spontaneous
  Country: US (occurrence: None)
  Receive Date: 20240709
  Receipt Date: 20240709
  Transmission Date: 20241016
  Serious: Yes (Other)
  Sender: Public
  Company Number: None

PATIENT
  Sex: Male

DRUGS (1)
  1. ABIRATERONE ACETATE [Suspect]
     Active Substance: ABIRATERONE ACETATE
     Indication: Prostate cancer
     Dosage: 500MG DAILY ORAL
     Route: 048
     Dates: start: 20240603, end: 20240709

REACTIONS (3)
  - Brain fog [None]
  - Blood urine present [None]
  - Therapy cessation [None]
